FAERS Safety Report 9097971 (Version 1)
Quarter: 2013Q1

REPORT INFORMATION
  Report Type: Spontaneous
  Country: US (occurrence: US)
  Receive Date: 20130212
  Receipt Date: 20130212
  Transmission Date: 20140127
  Serious: No
  Sender: FDA-Public Use
  Company Number: US-PFIZER INC-2013053424

PATIENT
  Sex: Male

DRUGS (1)
  1. LYRICA [Suspect]
     Indication: NEURALGIA
     Dosage: 75MG TWO TIMES DURING THE DAY,150MG ONCE AT NIGHT
     Route: 048
     Dates: end: 201302

REACTIONS (4)
  - Headache [Unknown]
  - Abdominal discomfort [Unknown]
  - Dizziness [Unknown]
  - Malaise [Unknown]
